FAERS Safety Report 7152323-3 (Version None)
Quarter: 2010Q4

REPORT INFORMATION
  Report Type: 
  Country: None (occurrence: None)
  Receive Date: 20101209
  Receipt Date: 20101209
  Transmission Date: 20110411
  Serious: Yes (Other)
  Sender: FDA-Public Use
  Company Number: None

PATIENT
  Age: 44 Year
  Sex: Male
  Weight: 134.2647 kg

DRUGS (2)
  1. LEFLUNOMIDE [Suspect]
     Indication: ANKYLOSING SPONDYLITIS
     Dates: start: 20090701, end: 20101206
  2. LEFLUNOMIDE [Suspect]

REACTIONS (5)
  - COLD SWEAT [None]
  - DIZZINESS [None]
  - MALAISE [None]
  - NAUSEA [None]
  - PRODUCT SUBSTITUTION ISSUE [None]
